FAERS Safety Report 6740795-5 (Version None)
Quarter: 2010Q2

REPORT INFORMATION
  Report Type: 
  Country: None (occurrence: None)
  Receive Date: 20100525
  Receipt Date: 20100525
  Transmission Date: 20101027
  Serious: No
  Sender: FDA-Public Use
  Company Number: None

PATIENT
  Sex: Female
  Weight: 83.15 kg

DRUGS (2)
  1. IFOSFAMIDE [Suspect]
     Dosage: 2.8 G
  2. TAXOL [Suspect]
     Dosage: 239 MG

REACTIONS (1)
  - PULMONARY EMBOLISM [None]
